FAERS Safety Report 9888575 (Version 1)
Quarter: 2014Q1

REPORT INFORMATION
  Report Type: Spontaneous
  Country: US (occurrence: US)
  Receive Date: 20140211
  Receipt Date: 20140211
  Transmission Date: 20141002
  Serious: Yes (Death, Other)
  Sender: FDA-Public Use
  Company Number: US-TEVA-461883USA

PATIENT
  Sex: Male

DRUGS (4)
  1. QVAR [Suspect]
  2. MEGESTROL [Concomitant]
  3. ACETAMINOPHEN [Concomitant]
  4. MIRTAZAPINE [Concomitant]

REACTIONS (2)
  - Lung neoplasm malignant [Fatal]
  - Bronchial carcinoma [Fatal]
